FAERS Safety Report 8835717 (Version 1)
Quarter: 2012Q4

REPORT INFORMATION
  Report Type: 
  Country: US (occurrence: US)
  Receive Date: 20121011
  Receipt Date: 20121011
  Transmission Date: 20130627
  Serious: Yes (Death)
  Sender: FDA-Public Use
  Company Number: US-AMGEN-USASP2012064242

PATIENT
  Age: 87 Year
  Sex: Female

DRUGS (1)
  1. ARANESP [Suspect]
     Indication: PRODUCT USED FOR UNKNOWN INDICATION
     Dosage: 200 mug, UNK
     Dates: start: 20120808

REACTIONS (4)
  - Cardiac failure congestive [Fatal]
  - Renal failure [Fatal]
  - Anaemia [Fatal]
  - Pneumonia [Fatal]
